FAERS Safety Report 17251089 (Version 1)
Quarter: 2020Q1

REPORT INFORMATION
  Report Type: Spontaneous
  Country: JP (occurrence: JP)
  Receive Date: 20200109
  Receipt Date: 20200109
  Transmission Date: 20200409
  Serious: Yes (Hospitalization, Other)
  Sender: FDA-Public Use
  Company Number: JP-BION-008479

PATIENT
  Age: 3 Month
  Sex: Male
  Weight: 4.44 kg

DRUGS (1)
  1. VALPROIC ACID. [Suspect]
     Active Substance: VALPROIC ACID
     Indication: GENERALISED TONIC-CLONIC SEIZURE

REACTIONS (2)
  - Infantile spasms [Recovering/Resolving]
  - Focal dyscognitive seizures [Recovered/Resolved]
